FAERS Safety Report 13372879 (Version 1)
Quarter: 2017Q1

REPORT INFORMATION
  Report Type: Spontaneous
  Country: US (occurrence: US)
  Receive Date: 20170326
  Receipt Date: 20170326
  Transmission Date: 20170429
  Serious: Yes (Disabling, Other)
  Sender: FDA-Public Use
  Company Number: None

PATIENT
  Age: 56 Year
  Sex: Female
  Weight: 83.25 kg

DRUGS (5)
  1. CIPRO [Suspect]
     Active Substance: CIPROFLOXACIN HYDROCHLORIDE
     Indication: CELLULITIS
     Dosage: ?          QUANTITY:1 TABLET(S);?
     Route: 048
     Dates: start: 20170201, end: 20170206
  2. NASACORT [Concomitant]
     Active Substance: TRIAMCINOLONE ACETONIDE
  3. SALINE SOLUTION NASAL SPRAY [Concomitant]
  4. BIOFREEZE [Concomitant]
     Active Substance: MENTHOL
  5. PRO-AIR (ALBUTEROL) [Concomitant]

REACTIONS (11)
  - Cellulitis [None]
  - Incorrect drug administration duration [None]
  - Arthropathy [None]
  - Soft tissue disorder [None]
  - Nausea [None]
  - Sinusitis [None]
  - Dizziness [None]
  - Inappropriate schedule of drug administration [None]
  - Contusion [None]
  - Intervertebral disc degeneration [None]
  - Intervertebral disc protrusion [None]

NARRATIVE: CASE EVENT DATE: 20170207
